FAERS Safety Report 21719178 (Version 2)
Quarter: 2023Q1

REPORT INFORMATION
  Report Type: Report from Study
  Country: TW (occurrence: TW)
  Receive Date: 20221213
  Receipt Date: 20230109
  Transmission Date: 20230417
  Serious: Yes (Other)
  Sender: FDA-Public Use
  Company Number: TW-ABBVIE-4178836

PATIENT
  Age: 56 Year
  Sex: Female

DRUGS (1)
  1. HUMIRA [Suspect]
     Active Substance: ADALIMUMAB
     Indication: Ankylosing spondylitis
     Route: 058
     Dates: start: 20170703, end: 20220914

REACTIONS (6)
  - Systemic lupus erythematosus [Unknown]
  - Purpura [Unknown]
  - Drug ineffective [Recovered/Resolved]
  - Pain [Unknown]
  - Red blood cell sedimentation rate increased [Unknown]
  - Discomfort [Unknown]

NARRATIVE: CASE EVENT DATE: 20220302
